FAERS Safety Report 9995229 (Version 1)
Quarter: 2014Q1

REPORT INFORMATION
  Report Type: Report from Study
  Country: US (occurrence: US)
  Receive Date: 20140311
  Receipt Date: 20140311
  Transmission Date: 20141002
  Serious: Yes (Other)
  Sender: FDA-Public Use
  Company Number: US-ROCHE-1356101

PATIENT
  Sex: Female
  Weight: 28.1 kg

DRUGS (3)
  1. SOMATROPIN [Suspect]
     Indication: TURNER^S SYNDROME
     Route: 065
     Dates: end: 201309
  2. RITALIN [Concomitant]
     Dosage: 5 TO 15 MG PRN IN THE AFTERNOON
     Route: 048
  3. MELATONIN [Concomitant]

REACTIONS (9)
  - Insulin-like growth factor increased [Unknown]
  - Anxiety [Unknown]
  - Weight increased [Unknown]
  - Pruritus genital [Unknown]
  - Diarrhoea [Unknown]
  - Deafness [Unknown]
  - Abdominal pain [Unknown]
  - Initial insomnia [Unknown]
  - Dry skin [Unknown]
